FAERS Safety Report 4610706-7 (Version None)
Quarter: 2005Q2

REPORT INFORMATION
  Report Type: 
  Country: None (occurrence: None)
  Receive Date: 20050228
  Receipt Date: 20040217
  Transmission Date: 20051028
  Serious: No
  Sender: FDA-Public Use
  Company Number: 204752

PATIENT
  Age: 16 Year
  Sex: Male
  Weight: 74.6 kg

DRUGS (2)
  1. NUTROPIN AQ [Suspect]
     Indication: GROWTH HORMONE DEFICIENCY
     Dosage: 4MG, 6/WEEK; SUBCUTANEOUS
     Route: 058
     Dates: start: 20020909
  2. LETROZOLE [Concomitant]

REACTIONS (1)
  - SLIPPED FEMORAL EPIPHYSIS [None]
